FAERS Safety Report 13541345 (Version 1)
Quarter: 2017Q2

REPORT INFORMATION
  Report Type: Spontaneous
  Country: US (occurrence: US)
  Receive Date: 20170512
  Receipt Date: 20170512
  Transmission Date: 20170830
  Serious: Yes (Hospitalization)
  Sender: FDA-Public Use
  Company Number: US-SA-2016SA089656

PATIENT
  Age: 69 Year
  Sex: Female

DRUGS (3)
  1. SOLOSTAR [Suspect]
     Active Substance: DEVICE
     Indication: TYPE 2 DIABETES MELLITUS
     Dosage: TREATMENT START DATE:4-5 YEARS
  2. LANTUS [Concomitant]
     Active Substance: INSULIN GLARGINE
  3. APIDRA SOLOSTAR [Suspect]
     Active Substance: INSULIN GLULISINE
     Indication: TYPE 2 DIABETES MELLITUS
     Dosage: DOSE: 12 UNITS + SSI (SLIDING SCALE INSULIN)?TREATMENT STRAT DATE: 4-5 YEARS
     Route: 065

REACTIONS (3)
  - Malaise [Unknown]
  - Blood glucose increased [Unknown]
  - Gait disturbance [Unknown]

NARRATIVE: CASE EVENT DATE: 2016
